FAERS Safety Report 7586357-1 (Version None)
Quarter: 2011Q2

REPORT INFORMATION
  Report Type: 
  Country: None (occurrence: None)
  Receive Date: 20110624
  Receipt Date: 20110608
  Transmission Date: 20111010
  Serious: Yes (Hospitalization)
  Sender: FDA-Public Use
  Company Number: DSA_46882_2011

PATIENT
  Age: 79 Year
  Sex: Male

DRUGS (7)
  1. LASIX [Suspect]
     Indication: ESSENTIAL HYPERTENSION
     Dosage: (DF ORAL)
     Route: 048
  2. ACETAMINOPHEN [Concomitant]
  3. BRICANYL [Concomitant]
  4. ASPIRIN [Concomitant]
  5. PREDNISOLONE [Concomitant]
  6. ENALAPRIL MALEATE [Suspect]
     Indication: ESSENTIAL HYPERTENSION
     Dosage: (DF ORAL)
     Route: 048
  7. DIAZEPAM [Concomitant]

REACTIONS (4)
  - DIPLOPIA [None]
  - ORTHOSTATIC HYPOTENSION [None]
  - DIZZINESS [None]
  - HEADACHE [None]
